FAERS Safety Report 24254177 (Version 1)
Quarter: 2024Q3

REPORT INFORMATION
  Report Type: Spontaneous
  Country: GB (occurrence: GB)
  Receive Date: 20240827
  Receipt Date: 20240827
  Transmission Date: 20241017
  Serious: Yes (Death, Hospitalization, Other)
  Sender: ADVANZ PHARMA
  Company Number: GB-MLMSERVICE-20240814-PI162489-00097-1

PATIENT

DRUGS (5)
  1. PREDNISOLONE [Suspect]
     Active Substance: PREDNISOLONE
     Indication: Aplasia pure red cell
     Dosage: UNK
  2. CYCLOSPORINE [Suspect]
     Active Substance: CYCLOSPORINE
     Indication: Crohn^s disease
     Dosage: SMALL DOSE
  3. CYCLOSPORINE [Suspect]
     Active Substance: CYCLOSPORINE
     Indication: Aplasia pure red cell
     Dosage: INCREASING DOSE BY AIMING FOR A LEVEL BETWEEN 100 - 200
  4. ROXADUSTAT [Concomitant]
     Active Substance: ROXADUSTAT
     Indication: Aplasia pure red cell
     Dosage: UNK
  5. IRON [Concomitant]
     Active Substance: IRON
     Dosage: UNK
     Route: 042

REACTIONS (3)
  - Cardiac arrest [Fatal]
  - Pneumococcal sepsis [Fatal]
  - Drug effective for unapproved indication [Unknown]
